FAERS Safety Report 24942370 (Version 2)
Quarter: 2025Q1

REPORT INFORMATION
  Report Type: Report from Study
  Country: JP (occurrence: JP)
  Receive Date: 20250207
  Receipt Date: 20250320
  Transmission Date: 20250409
  Serious: Yes (Hospitalization)
  Sender: PFIZER
  Company Number: JP-PFIZER INC-PV202500013539

PATIENT
  Age: 78 Year
  Sex: Male

DRUGS (2)
  1. ELRANATAMAB [Suspect]
     Active Substance: ELRANATAMAB
     Route: 058
     Dates: start: 20241119
  2. ELRANATAMAB [Suspect]
     Active Substance: ELRANATAMAB
     Route: 058

REACTIONS (3)
  - Immune effector cell-associated neurotoxicity syndrome [Recovering/Resolving]
  - Diarrhoea [Not Recovered/Not Resolved]
  - Cytomegalovirus infection [Unknown]

NARRATIVE: CASE EVENT DATE: 20241205
